FAERS Safety Report 9830461 (Version 1)
Quarter: 2014Q1

REPORT INFORMATION
  Report Type: Report from Study
  Country: FR (occurrence: FR)
  Receive Date: 20140120
  Receipt Date: 20140120
  Transmission Date: 20141002
  Serious: Yes (Hospitalization)
  Sender: FDA-Public Use
  Company Number: FR-JNJFOC-20140104638

PATIENT
  Age: 84 Year
  Sex: Male
  Weight: 90 kg

DRUGS (9)
  1. REMICADE [Suspect]
     Indication: ANKYLOSING SPONDYLITIS
     Route: 042
     Dates: start: 20101207
  2. REMICADE [Suspect]
     Indication: ANKYLOSING SPONDYLITIS
     Dosage: 2 AND 3RD INJECTION (DOSAGE FORM 10 MG/KG
     Route: 042
     Dates: start: 20101228, end: 20101229
  3. REMICADE [Suspect]
     Indication: COLITIS ULCERATIVE
     Route: 042
     Dates: start: 20101207
  4. REMICADE [Suspect]
     Indication: COLITIS ULCERATIVE
     Dosage: 2 AND 3RD INJECTION (DOSAGE FORM 10 MG/KG
     Route: 042
     Dates: start: 20101228, end: 20101229
  5. SOTALOL [Concomitant]
     Indication: CARDIAC DISORDER
     Route: 065
  6. AMLOR [Concomitant]
     Indication: CARDIAC DISORDER
     Route: 065
  7. SERETIDE [Concomitant]
     Indication: CHRONIC OBSTRUCTIVE PULMONARY DISEASE
     Route: 065
  8. SPIRIVA [Concomitant]
     Indication: CHRONIC OBSTRUCTIVE PULMONARY DISEASE
     Route: 065
  9. PENTASA [Concomitant]
     Indication: COLITIS ULCERATIVE
     Route: 065

REACTIONS (4)
  - Infusion related reaction [Recovered/Resolved]
  - Bronchospasm [Recovered/Resolved]
  - Hypertensive crisis [Recovered/Resolved]
  - Productive cough [Recovered/Resolved]
